FAERS Safety Report 5432035-4 (Version None)
Quarter: 2007Q3

REPORT INFORMATION
  Report Type: 
  Country: None (occurrence: None)
  Receive Date: 20070830
  Receipt Date: 20070810
  Transmission Date: 20080115
  Serious: No
  Sender: FDA-Public Use
  Company Number: US-BOEHRINGER INGELHEIM PHARMACEUTICALS, INC.-2007-BP-18982BP

PATIENT
  Sex: Male

DRUGS (2)
  1. ZANTAC 150 [Suspect]
     Indication: DYSPEPSIA
     Route: 048
     Dates: start: 20070809, end: 20070810
  2. ZANTAC 150 [Suspect]

REACTIONS (4)
  - CHEST PAIN [None]
  - DYSPEPSIA [None]
  - MUSCULOSKELETAL PAIN [None]
  - PAIN [None]
